FAERS Safety Report 7099887-6 (Version None)
Quarter: 2010Q4

REPORT INFORMATION
  Report Type: 
  Country: None (occurrence: None)
  Receive Date: 20101112
  Receipt Date: 20101105
  Transmission Date: 20110411
  Serious: Yes (Hospitalization, Other)
  Sender: FDA-Public Use
  Company Number: US-US-EMD SERONO, INC.-7022311

PATIENT
  Sex: Male

DRUGS (4)
  1. REBIF [Suspect]
     Indication: MULTIPLE SCLEROSIS
     Route: 058
     Dates: start: 20101005, end: 20101029
  2. REBIF [Suspect]
     Route: 058
     Dates: start: 20100101
  3. VALIUM [Concomitant]
  4. VICODIN [Concomitant]

REACTIONS (3)
  - ASTHENIA [None]
  - HAEMATURIA [None]
  - PROSTATOMEGALY [None]
